FAERS Safety Report 22869065 (Version 2)
Quarter: 2025Q3

REPORT INFORMATION
  Report Type: Spontaneous
  Country: GB (occurrence: GB)
  Receive Date: 20230825
  Receipt Date: 20250821
  Transmission Date: 20251021
  Serious: Yes (Hospitalization, Other)
  Sender: TEVA
  Company Number: GB-Hikma Pharmaceuticals USA Inc.-GB-H14001-22-00960

PATIENT
  Age: 68 Year
  Sex: Female
  Weight: 46.3 kg

DRUGS (6)
  1. CARBOPLATIN [Suspect]
     Active Substance: CARBOPLATIN
     Indication: Anal squamous cell carcinoma
     Route: 042
     Dates: start: 20220308, end: 20220314
  2. CARBOPLATIN [Suspect]
     Active Substance: CARBOPLATIN
     Indication: Anal squamous cell carcinoma
     Route: 042
     Dates: start: 20220405, end: 20220405
  3. PACLITAXEL [Suspect]
     Active Substance: PACLITAXEL
     Indication: Anal squamous cell carcinoma
     Route: 042
     Dates: start: 20220308, end: 20220308
  4. PACLITAXEL [Suspect]
     Active Substance: PACLITAXEL
     Indication: Anal squamous cell carcinoma
     Route: 042
     Dates: start: 20220314, end: 20220314
  5. PACLITAXEL [Suspect]
     Active Substance: PACLITAXEL
     Indication: Anal squamous cell carcinoma
     Route: 042
     Dates: start: 20220314, end: 20220314
  6. AMOXICILLIN\CLAVULANIC ACID [Suspect]
     Active Substance: AMOXICILLIN\CLAVULANIC ACID
     Indication: Prophylaxis
     Route: 042
     Dates: start: 20220318, end: 20220322

REACTIONS (7)
  - Blood pressure systolic decreased [Unknown]
  - Dizziness [Recovered/Resolved]
  - Fall [Recovered/Resolved]
  - Orthostatic hypotension [Unknown]
  - Vomiting [Recovered/Resolved]
  - Diarrhoea [Recovered/Resolved]
  - Dehydration [Unknown]

NARRATIVE: CASE EVENT DATE: 20220316
